FAERS Safety Report 6021521-4 (Version None)
Quarter: 2008Q4

REPORT INFORMATION
  Report Type: 
  Country: None (occurrence: None)
  Receive Date: 20081229
  Receipt Date: 20081223
  Transmission Date: 20090506
  Serious: Yes (Other)
  Sender: FDA-Public Use
  Company Number: B0551825A

PATIENT
  Age: 47 Year
  Sex: Male

DRUGS (2)
  1. NIQUITIN [Suspect]
     Route: 062
  2. NICORETTE [Suspect]
     Route: 065

REACTIONS (6)
  - CONJUNCTIVITIS [None]
  - DISTURBANCE IN ATTENTION [None]
  - NASOPHARYNGITIS [None]
  - OCULAR HYPERAEMIA [None]
  - VISION BLURRED [None]
  - VISUAL ACUITY REDUCED [None]
